FAERS Safety Report 8000529 (Version 2)
Quarter: 2012Q4

REPORT INFORMATION
  Report Type: 
  Country: US (occurrence: US)
  Receive Date: 20110621
  Receipt Date: 20120927
  Transmission Date: 20130627
  Serious: No
  Sender: FDA-Public Use
  Company Number: US-ASTRAZENECA-2008UW19472

PATIENT
  Sex: Female
  Weight: 81.6 kg

DRUGS (8)
  1. RHINOCORT AQUA [Suspect]
     Route: 045
  2. ATACAND [Suspect]
     Route: 048
  3. ATACAND HCT [Suspect]
     Indication: HYPERTENSION
     Dosage: 16/12.5, ONE OR 1/2 TABLET DAILY
     Route: 048
     Dates: start: 20071205
  4. NEXIUM [Suspect]
     Route: 048
  5. TOPROL XL [Suspect]
     Route: 048
  6. THYROID [Concomitant]
  7. HORMONES [Concomitant]
  8. OTHER BLOOD ORESSURE MEDICATION [Concomitant]

REACTIONS (8)
  - Blood pressure decreased [Unknown]
  - Drug intolerance [Unknown]
  - Asthenia [Unknown]
  - Epistaxis [Unknown]
  - Cough [Unknown]
  - Flushing [Unknown]
  - Visual impairment [Unknown]
  - Drug dose omission [Unknown]
